FAERS Safety Report 6178411-6 (Version None)
Quarter: 2009Q2

REPORT INFORMATION
  Report Type: 
  Country: None (occurrence: None)
  Receive Date: 20090504
  Receipt Date: 20080324
  Transmission Date: 20091009
  Serious: No
  Sender: FDA-Public Use
  Company Number: US-ALEXION-A200700117

PATIENT

DRUGS (25)
  1. SOLIRIS [Suspect]
     Indication: PAROXYSMAL NOCTURNAL HAEMOGLOBINURIA
     Dosage: 600 MG, SINGLE
     Route: 042
     Dates: start: 20071106, end: 20071106
  2. SOLIRIS [Suspect]
     Dosage: 600 MG, SINGLE
     Route: 042
     Dates: start: 20071113, end: 20071113
  3. SOLIRIS [Suspect]
     Dosage: 600 MG, SINGLE
     Route: 042
     Dates: start: 20071120, end: 20071120
  4. SOLIRIS [Suspect]
     Dosage: 600 MG, SINGLE
     Route: 042
     Dates: start: 20071127, end: 20071127
  5. SOLIRIS [Suspect]
     Dosage: 900 MG, SINGLE
     Route: 042
     Dates: start: 20071204, end: 20071204
  6. SOLIRIS [Suspect]
     Dosage: 900 MG, SINGLE
     Route: 042
     Dates: start: 20071218, end: 20071218
  7. SOLIRIS [Suspect]
     Dosage: 900 MG, SINGLE
     Route: 042
     Dates: start: 20080102, end: 20080102
  8. SOLIRIS [Suspect]
     Dosage: 900 MG, SINGLE
     Route: 042
     Dates: start: 20080115, end: 20080115
  9. SOLIRIS [Suspect]
     Dosage: 900 MG, SINGLE
     Route: 042
     Dates: start: 20080129, end: 20080120
  10. SOLIRIS [Suspect]
     Dosage: 900 MG, SINGLE
     Route: 042
     Dates: start: 20080212, end: 20080212
  11. SOLIRIS [Suspect]
     Dosage: 900 MG, SINGLE
     Route: 042
     Dates: start: 20080226, end: 20080226
  12. SOLIRIS [Suspect]
     Dosage: 900 MG, SINGLE
     Route: 042
     Dates: start: 20080311, end: 20080311
  13. FOLIC ACID [Concomitant]
     Indication: PAROXYSMAL NOCTURNAL HAEMOGLOBINURIA
     Dosage: 1600 MG, QD
     Route: 048
  14. MULTIVITAMIN /00831701/ [Concomitant]
     Indication: VITAMIN SUPPLEMENTATION
     Dosage: 1 TABLET, QD
     Route: 048
  15. PRILOSEC [Concomitant]
     Dosage: 20 MG, QD
     Route: 048
  16. WARFARIN [Concomitant]
     Indication: THROMBOSIS PROPHYLAXIS
     Dosage: 2 MG, QD
     Dates: start: 20060401
  17. FLEXERIL [Concomitant]
     Indication: BACK PAIN
     Dosage: 10 MG, PRN
     Route: 048
  18. IRON [Concomitant]
     Dosage: 650 MG, QD
     Route: 048
  19. PERCOCET [Concomitant]
     Indication: BACK PAIN
     Dosage: 5/325MG, PRN
     Route: 048
  20. NITRO-BID [Concomitant]
     Indication: OESOPHAGEAL SPASM
     Dosage: UNK, PRN
     Route: 061
  21. PREDNISONE [Concomitant]
     Dosage: 20 MG, QD
     Route: 048
     Dates: start: 20071027, end: 20071113
  22. PREDNISONE [Concomitant]
     Dosage: 15 MG, QD
     Route: 048
     Dates: start: 20071114, end: 20071120
  23. PREDNISONE [Concomitant]
     Dosage: 10 MG, QD
     Route: 048
     Dates: start: 20071121, end: 20071127
  24. PREDNISONE [Concomitant]
     Dosage: 10 MG, QOD
     Route: 048
     Dates: start: 20071128
  25. PREDNISONE [Concomitant]
     Dosage: 5 MG, QOD
     Route: 048
     Dates: start: 20071128

REACTIONS (3)
  - ANAEMIA [None]
  - FATIGUE [None]
  - WHITE BLOOD CELL COUNT DECREASED [None]
